APPROVED DRUG PRODUCT: NALOXONE HYDROCHLORIDE
Active Ingredient: NALOXONE HYDROCHLORIDE
Strength: 0.4MG/ML
Dosage Form/Route: INJECTABLE;INJECTION
Application: A071811 | Product #001
Applicant: MARSAM PHARMACEUTICALS LLC
Approved: Jul 19, 1988 | RLD: No | RS: No | Type: DISCN